FAERS Safety Report 8925230 (Version 2)
Quarter: 2012Q4

REPORT INFORMATION
  Report Type: 
  Country: US (occurrence: None)
  Receive Date: 20121116
  Receipt Date: 20121121
  Transmission Date: 20130627
  Serious: Yes (Hospitalization)
  Sender: FDA-Public Use
  Company Number: JPI-P-026210

PATIENT
  Age: 59 Year
  Sex: Female

DRUGS (7)
  1. XYREM (500 MILLIGRAM/MILLILITERS, SOLUTION) (SODIUM OXYBATE) [Suspect]
     Indication: CATAPLEXY
     Dosage: (2 gm, 2 in 1 d)
     Route: 048
     Dates: start: 20030814
  2. XYREM (500 MILLIGRAM/MILLILITERS, SOLUTION) (SODIUM OXYBATE) [Suspect]
     Indication: CATAPLEXY
     Route: 048
  3. XYREM (500 MILLIGRAM/MILLILITERS, SOLUTION) (SODIUM OXYBATE) [Suspect]
     Indication: CATAPLEXY
     Dosage: (3.5 gm, 2 in 1 d)
     Route: 048
     Dates: start: 20070828, end: 2012
  4. ESOMEPRAZONE MAGNESIUM [Concomitant]
  5. PROGESTERONE [Concomitant]
  6. MODAFINIL [Concomitant]
  7. METAXALONE [Concomitant]

REACTIONS (2)
  - Synovial cyst [None]
  - Joint arthroplasty [None]
